FAERS Safety Report 10879489 (Version 18)
Quarter: 2017Q4

REPORT INFORMATION
  Report Type: Report from Study
  Country: GB (occurrence: GB)
  Receive Date: 20150302
  Receipt Date: 20171019
  Transmission Date: 20180320
  Serious: Yes (Hospitalization, Other)
  Sender: FDA-Public Use
  Company Number: GB-INCYTE CORPORATION-2014IN003888

PATIENT

DRUGS (47)
  1. COCODAMOL [Concomitant]
     Active Substance: ACETAMINOPHEN\CODEINE PHOSPHATE
     Indication: MYELOFIBROSIS
     Dosage: QD
     Route: 048
     Dates: start: 20080225, end: 20141223
  2. LACTULOSE. [Concomitant]
     Active Substance: LACTULOSE
     Dosage: 10/20 ML BD PRN
     Route: 065
     Dates: start: 20071127
  3. LACTULOSE. [Concomitant]
     Active Substance: LACTULOSE
     Dosage: 10/20 ML BD PRN
     Route: 065
     Dates: start: 20071127
  4. LOSARTAN. [Concomitant]
     Active Substance: LOSARTAN
     Indication: PRODUCT USED FOR UNKNOWN INDICATION
     Dosage: 100 MG, QD
     Route: 048
  5. LOSARTAN. [Concomitant]
     Active Substance: LOSARTAN
     Dosage: 100 MG, QD
     Route: 048
  6. LOSARTAN. [Concomitant]
     Active Substance: LOSARTAN
     Dosage: 100 MG, QD
     Route: 048
  7. JAKAVI [Suspect]
     Active Substance: RUXOLITINIB
     Dosage: UNK
     Route: 048
     Dates: start: 20141223
  8. TICAGRELOR. [Concomitant]
     Active Substance: TICAGRELOR
     Dosage: UNK
     Route: 065
  9. TICAGRELOR. [Concomitant]
     Active Substance: TICAGRELOR
     Dosage: UNK
     Route: 065
  10. LOSARTAN. [Concomitant]
     Active Substance: LOSARTAN
     Dosage: 100 MG, QD
     Route: 048
  11. LOSARTAN. [Concomitant]
     Active Substance: LOSARTAN
     Dosage: 100 MG, QD
     Route: 048
  12. JAKAVI [Suspect]
     Active Substance: RUXOLITINIB
     Indication: MYELOFIBROSIS
     Dosage: 10 MG, BID
     Route: 048
     Dates: start: 20120313
  13. JAKAVI [Suspect]
     Active Substance: RUXOLITINIB
     Dosage: UNK
     Route: 048
     Dates: start: 20150215
  14. CARBOMER [Concomitant]
     Active Substance: CARBOMER
     Indication: DRY EYE
     Dosage: 1 DRP, (TDS/QDS)
     Route: 065
     Dates: start: 20110820
  15. CHOLECALCIFEROL [Concomitant]
     Active Substance: CHOLECALCIFEROL
     Indication: MYELOFIBROSIS
     Dosage: 1.25 G, BID
     Route: 048
     Dates: start: 20120723
  16. LACTULOSE. [Concomitant]
     Active Substance: LACTULOSE
     Dosage: 10/20 ML BD PRN
     Route: 065
     Dates: start: 20071127
  17. LACTULOSE. [Concomitant]
     Active Substance: LACTULOSE
     Dosage: 10/20 ML BD PRN
     Route: 065
     Dates: start: 20071127
  18. LACTULOSE. [Concomitant]
     Active Substance: LACTULOSE
     Dosage: 10/20 ML BD PRN
     Route: 065
     Dates: start: 20071127
  19. LOSARTAN. [Concomitant]
     Active Substance: LOSARTAN
     Dosage: 100 MG, QD
     Route: 048
  20. LOSARTAN. [Concomitant]
     Active Substance: LOSARTAN
     Dosage: 100 MG, QD
     Route: 048
  21. LOSARTAN. [Concomitant]
     Active Substance: LOSARTAN
     Dosage: 100 MG, QD
     Route: 048
  22. ACIFOL//FOLIC ACID [Concomitant]
     Active Substance: FOLIC ACID
     Indication: PLASMA CELL MYELOMA
     Dosage: 5 MG, BID
     Route: 048
     Dates: start: 20111026
  23. LACTULOSE. [Concomitant]
     Active Substance: LACTULOSE
     Indication: PELVIC PAIN
     Dosage: 10/20 ML BD PRN
     Route: 065
     Dates: start: 20071127
  24. TICAGRELOR. [Concomitant]
     Active Substance: TICAGRELOR
     Dosage: UNK
     Route: 065
  25. LOSARTAN. [Concomitant]
     Active Substance: LOSARTAN
     Dosage: 100 MG, QD
     Route: 048
  26. LACTULOSE. [Concomitant]
     Active Substance: LACTULOSE
     Dosage: 10/20 ML BD PRN
     Route: 065
     Dates: start: 20071127
  27. LACTULOSE. [Concomitant]
     Active Substance: LACTULOSE
     Dosage: 10/20 ML BD PRN
     Route: 065
     Dates: start: 20071127
  28. LACTULOSE. [Concomitant]
     Active Substance: LACTULOSE
     Dosage: 10/20 ML BD PRN
     Route: 065
     Dates: start: 20071127
  29. PROPRANOLOL [Concomitant]
     Active Substance: PROPRANOLOL HYDROCHLORIDE
     Indication: VARICES OESOPHAGEAL
     Dosage: 40 MG, TDS
     Route: 048
     Dates: start: 20110601
  30. TICAGRELOR. [Concomitant]
     Active Substance: TICAGRELOR
     Indication: MYOCARDIAL ISCHAEMIA
     Dosage: UNK
     Route: 065
  31. TICAGRELOR. [Concomitant]
     Active Substance: TICAGRELOR
     Dosage: UNK
     Route: 065
  32. ADALAT CC [Concomitant]
     Active Substance: NIFEDIPINE
     Indication: MYOCARDIAL ISCHAEMIA
     Dosage: 60 MG, QD
     Route: 048
     Dates: start: 20121221
  33. JAKAVI [Suspect]
     Active Substance: RUXOLITINIB
     Dosage: UNK
     Route: 048
     Dates: start: 20141226, end: 20141228
  34. LACTULOSE. [Concomitant]
     Active Substance: LACTULOSE
     Dosage: 10/20 ML BD PRN
     Route: 065
     Dates: start: 20071127
  35. LACTULOSE. [Concomitant]
     Active Substance: LACTULOSE
     Dosage: 10/20 ML BD PRN
     Route: 065
     Dates: start: 20071127
  36. LACTULOSE. [Concomitant]
     Active Substance: LACTULOSE
     Dosage: 10/20 ML BD PRN
     Route: 065
     Dates: start: 20071127
  37. LACTULOSE. [Concomitant]
     Active Substance: LACTULOSE
     Dosage: 10/20 ML BD PRN
     Route: 065
     Dates: start: 20071127
  38. OMEPRAZOLE. [Concomitant]
     Active Substance: OMEPRAZOLE
     Indication: VARICES OESOPHAGEAL
     Dosage: 20 MG, QD
     Route: 048
     Dates: start: 20110601
  39. TICAGRELOR. [Concomitant]
     Active Substance: TICAGRELOR
     Dosage: UNK
     Route: 065
  40. TICAGRELOR. [Concomitant]
     Active Substance: TICAGRELOR
     Dosage: UNK
     Route: 065
  41. JAKAVI [Suspect]
     Active Substance: RUXOLITINIB
     Dosage: 10 MG, BID
     Route: 048
     Dates: start: 20150211
  42. ASPIRIN//ACETYLSALICYLIC ACID [Concomitant]
     Active Substance: ASPIRIN
     Indication: MYOCARDIAL ISCHAEMIA
     Dosage: 75 MG, QD
     Route: 048
     Dates: start: 20121221
  43. LACTULOSE. [Concomitant]
     Active Substance: LACTULOSE
     Dosage: 10/20 ML BD PRN
     Route: 065
     Dates: start: 20071127
  44. TICAGRELOR. [Concomitant]
     Active Substance: TICAGRELOR
     Dosage: UNK
     Route: 065
  45. TICAGRELOR. [Concomitant]
     Active Substance: TICAGRELOR
     Dosage: UNK
     Route: 065
  46. TICAGRELOR. [Concomitant]
     Active Substance: TICAGRELOR
     Dosage: UNK
     Route: 065
  47. LOSARTAN. [Concomitant]
     Active Substance: LOSARTAN
     Dosage: 100 MG, QD
     Route: 048

REACTIONS (45)
  - Anaemia [Recovered/Resolved with Sequelae]
  - Pulmonary hypertension [Not Recovered/Not Resolved]
  - Anaemia [Recovered/Resolved with Sequelae]
  - Petechiae [Recovered/Resolved]
  - Anaemia [Recovered/Resolved with Sequelae]
  - Thrombocytopenia [Recovered/Resolved]
  - Oesophageal varices haemorrhage [Recovered/Resolved with Sequelae]
  - Oesophageal varices haemorrhage [Recovered/Resolved with Sequelae]
  - Contusion [Recovered/Resolved]
  - Contusion [Recovered/Resolved]
  - Anaemia [Recovered/Resolved with Sequelae]
  - Neutropenic sepsis [Recovered/Resolved]
  - Urinary tract infection [Recovered/Resolved]
  - Lower respiratory tract infection [Recovered/Resolved]
  - Thrombocytopenia [Recovered/Resolved]
  - Oesophageal varices haemorrhage [Recovered/Resolved with Sequelae]
  - Oesophageal varices haemorrhage [Recovered/Resolved with Sequelae]
  - Anaemia [Recovered/Resolved with Sequelae]
  - Upper respiratory tract infection [Recovered/Resolved]
  - Anaemia [Recovered/Resolved with Sequelae]
  - Thrombocytopenia [Recovered/Resolved]
  - Oesophageal varices haemorrhage [Recovered/Resolved with Sequelae]
  - Oesophageal varices haemorrhage [Recovered/Resolved with Sequelae]
  - Epistaxis [Recovered/Resolved]
  - Anaemia [Recovered/Resolved with Sequelae]
  - Basal cell carcinoma [Recovered/Resolved]
  - Fall [Unknown]
  - Oesophageal varices haemorrhage [Recovered/Resolved with Sequelae]
  - Oesophageal varices haemorrhage [Recovered/Resolved with Sequelae]
  - Vessel puncture site haemorrhage [Recovered/Resolved]
  - Urinary tract infection [Recovered/Resolved]
  - Thrombocytopenia [Recovered/Resolved]
  - Second primary malignancy [Recovered/Resolved]
  - Oesophageal varices haemorrhage [Recovered/Resolved with Sequelae]
  - Oesophageal varices haemorrhage [Recovered/Resolved with Sequelae]
  - Oesophageal varices haemorrhage [Recovered/Resolved with Sequelae]
  - Anaemia [Recovered/Resolved with Sequelae]
  - Squamous cell carcinoma [Recovered/Resolved]
  - Anaemia [Recovered/Resolved with Sequelae]
  - Increased tendency to bruise [Recovered/Resolved]
  - Anaemia [Recovered/Resolved with Sequelae]
  - Thrombocytopenia [Recovered/Resolved]
  - Contusion [Recovered/Resolved]
  - Epistaxis [Recovered/Resolved]
  - Anaemia [Recovering/Resolving]

NARRATIVE: CASE EVENT DATE: 20140716
